FAERS Safety Report 7448278-4 (Version None)
Quarter: 2011Q2

REPORT INFORMATION
  Report Type: 
  Country: None (occurrence: None)
  Receive Date: 20110429
  Receipt Date: 20110420
  Transmission Date: 20111010
  Serious: Yes (Other)
  Sender: FDA-Public Use
  Company Number: JP-ASTRAZENECA-2011SE20997

PATIENT
  Age: 63 Year
  Sex: Female

DRUGS (2)
  1. CARBOCAIN [Suspect]
     Indication: INFILTRATION ANAESTHESIA
     Route: 058
     Dates: start: 20110401, end: 20110401
  2. DECADRON [Concomitant]
     Dosage: DOSE UNKNOWN
     Route: 058
     Dates: start: 20110401, end: 20110401

REACTIONS (1)
  - HERPES ZOSTER [None]
